FAERS Safety Report 17192102 (Version 3)
Quarter: 2020Q1

REPORT INFORMATION
  Report Type: Spontaneous
  Country: US (occurrence: US)
  Receive Date: 20191223
  Receipt Date: 20200108
  Transmission Date: 20200409
  Serious: No
  Sender: FDA-Public Use
  Company Number: US-PFIZER INC-2019507020

PATIENT
  Age: 73 Year
  Sex: Female
  Weight: 68.4 kg

DRUGS (8)
  1. ROBITUSSIN HONEY MAXIMUM STRENGTH NIGHTTIME COUGH DM [Suspect]
     Active Substance: DEXTROMETHORPHAN HYDROBROMIDE\DOXYLAMINE SUCCINATE
     Indication: COUGH
     Dosage: 20 MG, UNK (20 MG 1 TIME ONLY)
     Dates: start: 20191120
  2. FUROSEMIDE. [Concomitant]
     Active Substance: FUROSEMIDE
     Dosage: UNK
     Dates: start: 201905
  3. MORPHINE [Concomitant]
     Active Substance: MORPHINE
     Indication: DYSPNOEA
     Dosage: 0.25 ML, UNK
     Dates: start: 20191126
  4. IBUPROFEN. [Concomitant]
     Active Substance: IBUPROFEN
     Indication: PAIN
     Dosage: UNK, (NOT OFTEN)
     Dates: start: 2015
  5. FUROSEMIDE. [Concomitant]
     Active Substance: FUROSEMIDE
     Dosage: 40 MG, UNK
     Dates: start: 20190701
  6. MORPHINE [Concomitant]
     Active Substance: MORPHINE
     Indication: CHOKING
  7. ROBITUSSIN HONEY MAXIMUM STRENGTH NIGHTTIME COUGH DM [Suspect]
     Active Substance: DEXTROMETHORPHAN HYDROBROMIDE\DOXYLAMINE SUCCINATE
     Indication: PRODUCTIVE COUGH
     Dosage: 20 MG, UNK,(20 MG-1 TIME ONLY)
     Dates: start: 20191126, end: 20191126
  8. MORPHINE [Concomitant]
     Active Substance: MORPHINE
     Indication: OBSTRUCTIVE AIRWAYS DISORDER

REACTIONS (3)
  - Somnolence [Unknown]
  - Head discomfort [Recovered/Resolved]
  - Dizziness [Recovered/Resolved]
